FAERS Safety Report 5263212-3 (Version None)
Quarter: 2007Q1

REPORT INFORMATION
  Report Type: 
  Country: None (occurrence: None)
  Receive Date: 20061219
  Receipt Date: 20061101
  Transmission Date: 20070707
  Serious: No
  Sender: FDA-Public Use
  Company Number: 2006US002438

PATIENT
  Age: 66 Year
  Sex: Female

DRUGS (11)
  1. VESICARE [Suspect]
     Indication: INCONTINENCE
     Dosage: 5 MG, ORAL
     Route: 048
     Dates: start: 20061001
  2. STOOL SOFTENER (DOCUSATE SODIUM) [Concomitant]
  3. CALCIUM WITH VITAMIN D (ERGOCALCIFEROL, CALCIUM SODIUM LACTATE, CALCIU [Concomitant]
  4. SYNTEST (METHYLTESTOSTERONE, ESTROGENS ESTERIFIED) [Concomitant]
  5. AVALIDE (IRBESARTAN) [Concomitant]
  6. LEXAPRO (ESCITALORPAM OXALATE) [Concomitant]
  7. LUVOXYL (FRUCTOSE) [Concomitant]
  8. CHROMIUM (CHROMIUM) [Concomitant]
  9. ASPIRIN [Concomitant]
  10. MOVE FREE (GLUCOSAMINE, CHONDROITIN SULFATE) [Concomitant]
  11. FISH OIL (FISH OIL) [Concomitant]

REACTIONS (1)
  - RECTAL HAEMORRHAGE [None]
